FAERS Safety Report 9766950 (Version 1)
Quarter: 2013Q4

REPORT INFORMATION
  Report Type: Spontaneous
  Country: US (occurrence: US)
  Receive Date: 20131217
  Receipt Date: 20131217
  Transmission Date: 20140711
  Serious: No
  Sender: FDA-Public Use
  Company Number: US-GLAXOSMITHKLINE-A1035034A

PATIENT
  Age: 69 Year
  Sex: Male

DRUGS (4)
  1. VOTRIENT [Suspect]
     Indication: HEPATIC NEOPLASM
     Dosage: 200MG PER DAY
     Route: 048
     Dates: start: 20130625
  2. LIPITOR [Concomitant]
  3. LEVOTHYROXINE [Concomitant]
  4. COZAAR [Concomitant]

REACTIONS (2)
  - Oropharyngeal pain [Not Recovered/Not Resolved]
  - Dysphagia [Unknown]
